FAERS Safety Report 9051963 (Version 2)
Quarter: 2013Q1

REPORT INFORMATION
  Report Type: Spontaneous
  Country: ES (occurrence: ES)
  Receive Date: 20130207
  Receipt Date: 20130219
  Transmission Date: 20140127
  Serious: Yes (Hospitalization)
  Sender: FDA-Public Use
  Company Number: ES-JNJFOC-20130201059

PATIENT
  Age: 50 Year
  Sex: Female

DRUGS (10)
  1. PALEXIA RETARD [Suspect]
     Indication: INTERVERTEBRAL DISC PROTRUSION
     Route: 048
     Dates: start: 201205, end: 20121018
  2. CYMBALTA [Suspect]
     Indication: PRODUCT USED FOR UNKNOWN INDICATION
     Route: 048
     Dates: start: 2012, end: 20121019
  3. CIPROFLOXACIN [Suspect]
     Indication: URINARY TRACT INFECTION
     Route: 042
     Dates: start: 20121016, end: 20121017
  4. ETUMINA [Suspect]
     Indication: PRODUCT USED FOR UNKNOWN INDICATION
     Route: 048
     Dates: start: 2012, end: 20121019
  5. LEVOFLOXACIN [Concomitant]
     Indication: ESCHERICHIA INFECTION
     Route: 065
     Dates: end: 20121016
  6. CEFTRIAXONE [Concomitant]
     Indication: ESCHERICHIA INFECTION
     Route: 065
     Dates: end: 20121016
  7. SEROQUEL [Concomitant]
     Indication: PRODUCT USED FOR UNKNOWN INDICATION
     Route: 048
  8. LORMETAZEPAM [Concomitant]
     Indication: PRODUCT USED FOR UNKNOWN INDICATION
     Route: 048
  9. AUGMENTINE [Concomitant]
     Indication: URINARY TRACT INFECTION
     Route: 065
  10. ATORVASTATIN [Concomitant]
     Indication: PRODUCT USED FOR UNKNOWN INDICATION
     Route: 048

REACTIONS (3)
  - Myoclonus [Recovered/Resolved]
  - Apraxia [Recovered/Resolved]
  - Somnolence [Recovered/Resolved]
